FAERS Safety Report 5559236-9 (Version None)
Quarter: 2007Q4

REPORT INFORMATION
  Report Type: 
  Country: None (occurrence: None)
  Receive Date: 20071130
  Receipt Date: 20070816
  Transmission Date: 20080405
  Serious: No
  Sender: FDA-Public Use
  Company Number: US200708003753

PATIENT
  Age: 54 Year
  Sex: Male

DRUGS (4)
  1. BYETTA [Suspect]
     Indication: TYPE 2 DIABETES MELLITUS
     Dosage: 5 UG, SUBCUTANEOUS ; 10 UG, 2/D, SUBCUTANEOUS ; 5 UG, 2/D, SUBCUTANEOUS
     Route: 058
     Dates: end: 20070709
  2. EXENATIDE 10MCG PEN, DISPOSABLE DEVICE (EXENATIDE PEN (10MCG)) PEN,DIS [Concomitant]
  3. GLIPIZIDE [Concomitant]
  4. METFORMIN HCL [Concomitant]

REACTIONS (3)
  - BLOOD GLUCOSE INCREASED [None]
  - NAUSEA [None]
  - WEIGHT DECREASED [None]
